FAERS Safety Report 15781812 (Version 1)
Quarter: 2019Q1

REPORT INFORMATION
  Report Type: Spontaneous
  Country: US (occurrence: US)
  Receive Date: 20190102
  Receipt Date: 20190102
  Transmission Date: 20190417
  Serious: No
  Sender: FDA-Public Use
  Company Number: US-TEVA-2018-US-987229

PATIENT
  Sex: Male

DRUGS (1)
  1. AMLODIPIN/LOSARTAN POTASSIUM [Suspect]
     Active Substance: AMLODIPINE\LOSARTAN POTASSIUM
     Indication: BLOOD PRESSURE INCREASED
     Dates: start: 201811

REACTIONS (3)
  - Constipation [Unknown]
  - Peripheral coldness [Unknown]
  - Dyspepsia [Unknown]
